FAERS Safety Report 15323381 (Version 1)
Quarter: 2018Q3

REPORT INFORMATION
  Report Type: Spontaneous
  Country: ES (occurrence: ES)
  Receive Date: 20180827
  Receipt Date: 20180827
  Transmission Date: 20181010
  Serious: Yes (Disabling)
  Sender: FDA-Public Use
  Company Number: ES-B.I. PHARMACEUTICALS,INC./RIDGEFIELD-2018-12-002839

PATIENT
  Age: 61 Year
  Sex: Male

DRUGS (15)
  1. JARDIANCE [Suspect]
     Active Substance: EMPAGLIFLOZIN
     Indication: DIABETES MELLITUS
     Dosage: START PERIOD: 186 DAYS; LAST PERIOD: 1 DAYS
     Route: 048
     Dates: start: 20180126, end: 20180730
  2. CARDYL [Concomitant]
     Active Substance: ATORVASTATIN CALCIUM
     Indication: HYPERLIPIDAEMIA
     Dosage: START PERIOD: 327 DAYS; ACTION(S) TAKEN WITH DRUG: NOT REPORTED
     Route: 048
     Dates: start: 20170907
  3. LANTUS [Concomitant]
     Active Substance: INSULIN GLARGINE
     Indication: DIABETES MELLITUS
     Dosage: START PERIOD: 2276 DAYS; ACTION(S) TAKEN WITH DRUG: NOT REPORTED STRENGTH: 100 UNITS/ML
     Route: 058
     Dates: start: 20120507
  4. NOVORAPID [Concomitant]
     Active Substance: INSULIN ASPART
     Indication: DIABETES MELLITUS
     Dosage: START PERIOD: 1111 DAYS; ACTION(S) TAKEN WITH DRUG: NOT REPORTED STRENGTH: 100 U/ML
     Route: 058
     Dates: start: 20150716
  5. FUROSEMIDA [Concomitant]
     Active Substance: FUROSEMIDE
     Indication: MYOCARDIAL ISCHAEMIA
     Dosage: START PERIOD: 451 DAYS; ACTION(S) TAKEN WITH DRUG: NOT REPORTED
     Route: 048
     Dates: start: 20170506
  6. BISOPROLOL [Concomitant]
     Active Substance: BISOPROLOL
     Indication: ACUTE MYOCARDIAL INFARCTION
     Dosage: START PERIOD: 466 DAYS; ACTION(S) TAKEN WITH DRUG: NOT REPORTED
     Route: 048
     Dates: start: 20170421
  7. RAMIPRIL. [Concomitant]
     Active Substance: RAMIPRIL
     Indication: ESSENTIAL HYPERTENSION
     Dosage: START PERIOD: 467 DAYS; ACTION(S) TAKEN WITH DRUG: NOT REPORTED
     Route: 048
     Dates: start: 20170420
  8. ABSTRAL [Concomitant]
     Active Substance: FENTANYL CITRATE
     Indication: PRODUCT USED FOR UNKNOWN INDICATION
     Dosage: START PERIOD: 49 DAYS; ACTION(S) TAKEN WITH DRUG: NOT REPORTED STRENGTH: 200 MICROGRAMOS
     Route: 060
     Dates: start: 20180612
  9. ASPIRIN. [Concomitant]
     Active Substance: ASPIRIN
     Indication: ACUTE MYOCARDIAL INFARCTION
     Dosage: START PERIOD: 466 DAYS; ACTION(S) TAKEN WITH DRUG: NOT REPORTED
     Route: 048
     Dates: start: 20170421
  10. PARACETAMOL [Concomitant]
     Active Substance: ACETAMINOPHEN
     Indication: INTERVERTEBRAL DISC DISORDER
     Dosage: START PERIOD: 99 DAYS
     Route: 048
     Dates: start: 20180423
  11. PARACETAMOL [Concomitant]
     Active Substance: ACETAMINOPHEN
     Indication: MYELOPATHY
  12. PALEXIA [Concomitant]
     Active Substance: TAPENTADOL HYDROCHLORIDE
     Indication: OSTEOARTHRITIS
     Dosage: START PERIOD: 844 DAYS; ACTION(S) TAKEN WITH DRUG: NOT REPORTED
     Route: 048
     Dates: start: 20160408
  13. PANTOPRAZOL [Concomitant]
     Active Substance: PANTOPRAZOLE SODIUM
     Indication: ACUTE MYOCARDIAL INFARCTION
     Dosage: START PERIOD: 466 DAYS
     Route: 048
     Dates: start: 20170421
  14. DULOXETINA [Concomitant]
     Active Substance: DULOXETINE
     Indication: ARTHRALGIA
     Dosage: START PERIOD: 696 DAYS; ACTION(S) TAKEN WITH DRUG: NOT REPORTED
     Route: 048
     Dates: start: 20160903
  15. NITROGLICERINA [Concomitant]
     Active Substance: NITROGLYCERIN
     Indication: ACUTE MYOCARDIAL INFARCTION
     Dosage: START PERIOD: 451 DAYS; ACTION TAKEN WITH DRUG: NOT REPORTED
     Route: 060
     Dates: start: 20170506

REACTIONS (2)
  - Toe amputation [Recovering/Resolving]
  - Diabetic foot [Recovering/Resolving]

NARRATIVE: CASE EVENT DATE: 20180730
